FAERS Safety Report 6040737-4 (Version None)
Quarter: 2009Q1

REPORT INFORMATION
  Report Type: 
  Country: None (occurrence: None)
  Receive Date: 20090116
  Receipt Date: 20080714
  Transmission Date: 20090719
  Serious: No
  Sender: FDA-Public Use
  Company Number: US-BRISTOL-MYERS SQUIBB COMPANY-14192165

PATIENT
  Age: 58 Year
  Sex: Female

DRUGS (8)
  1. ABILIFY [Suspect]
  2. PERCOCET [Suspect]
     Indication: BACK PAIN
     Dosage: DOSE TAKEN AS 50-100MG
  3. FLEXERIL [Suspect]
  4. TRILEPTAL [Suspect]
  5. KLONOPIN [Suspect]
  6. GABAPENTIN [Suspect]
  7. HYDROXYZINE HCL [Suspect]
  8. TRAMADOL HCL [Suspect]

REACTIONS (2)
  - ASTHENIA [None]
  - VISUAL IMPAIRMENT [None]
